FAERS Safety Report 24648130 (Version 1)
Quarter: 2024Q4

REPORT INFORMATION
  Report Type: Spontaneous
  Country: IL (occurrence: IL)
  Receive Date: 20241121
  Receipt Date: 20241121
  Transmission Date: 20250115
  Serious: Yes (Hospitalization, Other)
  Sender: AMGEN
  Company Number: IL-AMGEN-ISRSP2024225120

PATIENT
  Age: 38 Year
  Sex: Female

DRUGS (1)
  1. ADALIMUMAB [Suspect]
     Active Substance: ADALIMUMAB
     Indication: Scleroderma
     Dosage: UNK
     Route: 065

REACTIONS (11)
  - Overlap syndrome [Unknown]
  - Cellulitis [Unknown]
  - Ankylosing spondylitis [Unknown]
  - Interstitial lung disease [Unknown]
  - Drug ineffective for unapproved indication [Unknown]
  - General physical health deterioration [Unknown]
  - Hiatus hernia [Unknown]
  - Loss of personal independence in daily activities [Unknown]
  - Quality of life decreased [Unknown]
  - Off label use [Unknown]
  - Hypertension [Unknown]
